FAERS Safety Report 10554015 (Version 3)
Quarter: 2015Q1

REPORT INFORMATION
  Report Type: Spontaneous
  Country: US (occurrence: US)
  Receive Date: 20141030
  Receipt Date: 20150123
  Transmission Date: 20150720
  Serious: Yes (Other)
  Sender: FDA-Public Use
  Company Number: US-JNJCP-30000246873

PATIENT
  Age: 49 Year
  Sex: Female
  Weight: 75 kg

DRUGS (13)
  1. MULTIVITAMIN [Concomitant]
     Active Substance: VITAMINS
     Indication: PRODUCT USED FOR UNKNOWN INDICATION
     Dosage: ONCE DAILY
     Dates: start: 20060104
  2. ATIVAN [Concomitant]
     Active Substance: LORAZEPAM
     Indication: PRODUCT USED FOR UNKNOWN INDICATION
     Dosage: 0.5 MG TABLET, DAILY AT BEDTIME
     Dates: start: 20130313
  3. EFFEXOR [Concomitant]
     Active Substance: VENLAFAXINE HYDROCHLORIDE
     Indication: MENOPAUSE
     Dosage: 37.5MG, SINCE FOUR TO FIVE YEARS, TWICE A DAY
  4. CHLORTRIMETON ALLERGY 12 HOUR [Concomitant]
     Indication: PRODUCT USED FOR UNKNOWN INDICATION
     Dosage: ONE TABLET AS NEEDED
     Route: 048
  5. ROC RETINOL CORREXION DEEP WRINKLE DAILY MOISTURIZER SPF30 [Suspect]
     Active Substance: AVOBENZONE\HOMOSALATE\OCTOCRYLENE\OXYBENZONE
     Indication: SKIN WRINKLING
     Route: 061
  6. CLOATRAMATON (SIC) [Concomitant]
     Indication: PRODUCT USED FOR UNKNOWN INDICATION
  7. COENZYME Q10 [Concomitant]
     Active Substance: UBIDECARENONE
     Indication: PRODUCT USED FOR UNKNOWN INDICATION
     Dosage: ONE CAPSULE ONCE DAILY
     Route: 048
     Dates: start: 20130313
  8. VENLAFAXINE [Concomitant]
     Active Substance: VENLAFAXINE HYDROCHLORIDE
     Indication: PRODUCT USED FOR UNKNOWN INDICATION
     Dosage: 37.5 MG TWICE DAILY
     Route: 048
  9. VITAMIN D3 [Concomitant]
     Active Substance: CHOLECALCIFEROL
     Indication: PRODUCT USED FOR UNKNOWN INDICATION
     Dosage: 1000 UNIT CAPSULE, TWO CAPSULES ONCE DAILY
  10. NASAL SPRAY POSS FLONASE (FLUTICASONE PROPIONATE) [Concomitant]
     Indication: PRODUCT USED FOR UNKNOWN INDICATION
     Dosage: 50 MCG PER ACTUATION NASAL SPRAY, ONE SPRAY IN EACH NOSTRIL ONCE DAILY
  11. CALCIUM [Concomitant]
     Active Substance: CALCIUM
     Indication: PRODUCT USED FOR UNKNOWN INDICATION
     Route: 048
  12. AT (TEARS NATURALE) [Concomitant]
     Indication: PRODUCT USED FOR UNKNOWN INDICATION
     Dosage: ONCE DAILY, AS NEEDED
  13. IMITREX [Concomitant]
     Active Substance: SUMATRIPTAN\SUMATRIPTAN SUCCINATE
     Indication: MIGRAINE
     Dosage: 100 MG ONE PILL EVERY 2-4 HOURS, AS NEEDED
     Route: 048
     Dates: start: 20040225

REACTIONS (11)
  - Conjunctivitis allergic [Unknown]
  - Vision blurred [Unknown]
  - Keratitis [Unknown]
  - Accidental exposure to product [Not Recovered/Not Resolved]
  - Eye irritation [Not Recovered/Not Resolved]
  - Corneal oedema [Unknown]
  - Limbal stem cell deficiency [Unknown]
  - Injury corneal [Not Recovered/Not Resolved]
  - Visual impairment [Not Recovered/Not Resolved]
  - Foreign body sensation in eyes [Unknown]
  - Photophobia [Unknown]

NARRATIVE: CASE EVENT DATE: 201210
